FAERS Safety Report 4940779-3 (Version None)
Quarter: 2006Q1

REPORT INFORMATION
  Report Type: 
  Country: None (occurrence: None)
  Receive Date: 20060308
  Receipt Date: 20060223
  Transmission Date: 20060701
  Serious: Yes (Death, Hospitalization, Other)
  Sender: FDA-Public Use
  Company Number: 2006030449

PATIENT
  Sex: Male

DRUGS (2)
  1. CELEBREX [Suspect]
     Indication: ILL-DEFINED DISORDER
     Dates: start: 20001001, end: 20030301
  2. BEXTRA [Suspect]
     Indication: ILL-DEFINED DISORDER
     Dates: start: 20030301, end: 20030701

REACTIONS (1)
  - CEREBROVASCULAR ACCIDENT [None]
